FAERS Safety Report 15393030 (Version 1)
Quarter: 2018Q3

REPORT INFORMATION
  Report Type: Report from Study
  Country: BR (occurrence: BR)
  Receive Date: 20180917
  Receipt Date: 20180917
  Transmission Date: 20181010
  Serious: Yes (Other)
  Sender: FDA-Public Use
  Company Number: BR-UCBSA-2018033313

PATIENT
  Sex: Female
  Weight: 70 kg

DRUGS (3)
  1. GARDENAL [Suspect]
     Active Substance: PHENOBARBITAL
     Indication: EPILEPSY
     Dosage: UNK
     Route: 048
  2. LEVETIRACETAM. [Suspect]
     Active Substance: LEVETIRACETAM
     Indication: EPILEPSY
     Dosage: 1 ML, 2X/DAY (BID)
     Route: 048
     Dates: start: 201802
  3. PHENOBARBITAL. [Concomitant]
     Active Substance: PHENOBARBITAL
     Indication: EPILEPSY
     Dosage: UNK

REACTIONS (5)
  - Somnolence [Not Recovered/Not Resolved]
  - Seizure [Recovered/Resolved]
  - Drug dose omission [Unknown]
  - Pregnancy [Unknown]
  - Pregnancy on contraceptive [Not Recovered/Not Resolved]

NARRATIVE: CASE EVENT DATE: 2018
